FAERS Safety Report 4313389-9 (Version None)
Quarter: 2004Q1

REPORT INFORMATION
  Report Type: 
  Country: None (occurrence: None)
  Receive Date: 20040304
  Receipt Date: 20040218
  Transmission Date: 20041129
  Serious: Yes (Hospitalization)
  Sender: FDA-Public Use
  Company Number: USA040259671

PATIENT
  Age: 14 Year
  Sex: Male

DRUGS (1)
  1. STRATTERA [Suspect]
     Dosage: 800 MG/1 DAY
     Dates: start: 20040201, end: 20040201

REACTIONS (3)
  - HEADACHE [None]
  - INTENTIONAL SELF-INJURY [None]
  - OVERDOSE [None]
